FAERS Safety Report 5338323-4 (Version None)
Quarter: 2007Q2

REPORT INFORMATION
  Report Type: 
  Country: None (occurrence: None)
  Receive Date: 20070405
  Receipt Date: 20061114
  Transmission Date: 20071010
  Serious: No
  Sender: FDA-Public Use
  Company Number: US200611002877

PATIENT
  Sex: Female

DRUGS (6)
  1. CYMBALTA [Suspect]
     Indication: BIPOLAR DISORDER
     Dosage: 60 MG
     Dates: start: 20040101
  2. ZYPREXA [Suspect]
     Indication: BIPOLAR DISORDER
     Dosage: 20 MG
     Dates: start: 20040101
  3. CLONAZEPAM [Concomitant]
  4. HYDROCODONE (HYDROCODONE) [Concomitant]
  5. TIZANIDINE HCL [Concomitant]
  6. TRAMADOL HCL [Concomitant]

REACTIONS (1)
  - DRUG SCREEN POSITIVE [None]
